FAERS Safety Report 18657995 (Version 1)
Quarter: 2020Q4

REPORT INFORMATION
  Report Type: Spontaneous
  Country: US (occurrence: US)
  Receive Date: 20201223
  Receipt Date: 20201223
  Transmission Date: 20210114
  Serious: No
  Sender: FDA-Public Use
  Company Number: US-ASTRAZENECA-2020SF66963

PATIENT
  Sex: Female

DRUGS (3)
  1. ROSUVASTATIN. [Suspect]
     Active Substance: ROSUVASTATIN
     Route: 048
  2. VYNDAQEL [Interacting]
     Active Substance: TAFAMIDIS MEGLUMINE
     Route: 048
  3. ATORVASTATIN [Interacting]
     Active Substance: ATORVASTATIN
     Route: 065

REACTIONS (1)
  - Drug interaction [Unknown]
